FAERS Safety Report 4488729-0 (Version None)
Quarter: 2004Q4

REPORT INFORMATION
  Report Type: 
  Country: None (occurrence: None)
  Receive Date: 20041025
  Receipt Date: 20041012
  Transmission Date: 20050328
  Serious: Yes (Hospitalization)
  Sender: FDA-Public Use
  Company Number: 2004-04412

PATIENT
  Age: 48 Year
  Sex: Female

DRUGS (3)
  1. HALOPERIDOL [Suspect]
     Indication: SCHIZOPHRENIA
     Dosage: SEE IMAGE
     Dates: start: 19940101, end: 20020401
  2. RISPERDAL [Concomitant]
  3. OLANZAPINE [Concomitant]

REACTIONS (1)
  - TOURETTE'S DISORDER [None]
